FAERS Safety Report 23975755 (Version 6)
Quarter: 2025Q4

REPORT INFORMATION
  Report Type: Spontaneous
  Country: JP (occurrence: JP)
  Receive Date: 20240614
  Receipt Date: 20251024
  Transmission Date: 20260117
  Serious: Yes (Death, Life-Threatening)
  Sender: EISAI
  Company Number: JP-Eisai-202402950_LEN-EC_P_1

PATIENT
  Age: 77 Year
  Sex: Female

DRUGS (10)
  1. LENVIMA [Suspect]
     Active Substance: LENVATINIB
     Indication: Endometrial cancer
     Dosage: DOSE AND FREQUENCY UNKNOWN
     Route: 048
     Dates: start: 20220404, end: 2022
  2. LENVIMA [Suspect]
     Active Substance: LENVATINIB
     Route: 048
     Dates: start: 2022, end: 2022
  3. LENVIMA [Suspect]
     Active Substance: LENVATINIB
     Route: 048
     Dates: start: 20220530, end: 2022
  4. LENVIMA [Suspect]
     Active Substance: LENVATINIB
     Route: 048
     Dates: start: 20220606
  5. LENVIMA [Suspect]
     Active Substance: LENVATINIB
     Route: 048
  6. LENVIMA [Suspect]
     Active Substance: LENVATINIB
     Route: 048
     Dates: end: 20240605
  7. KEYTRUDA [Suspect]
     Active Substance: PEMBROLIZUMAB
     Indication: Endometrial cancer
     Dosage: DOSE UNKNOWN
     Route: 042
     Dates: start: 20220404, end: 20240408
  8. LEVOTHYROXINE [Concomitant]
     Active Substance: LEVOTHYROXINE
     Indication: Hypothyroidism
     Dosage: DOSE AND FREQUENCY UNKNOWN
     Route: 048
  9. AMLODIPINE [Concomitant]
     Active Substance: AMLODIPINE BESYLATE
     Indication: Hypertension
     Dosage: DOSE AND FREQUENCY UNKNOWN
  10. URSODIOL [Concomitant]
     Active Substance: URSODIOL
     Indication: Hepatic enzyme increased
     Dosage: DOSE AND FREQUENCY UNKNOWN

REACTIONS (3)
  - Multiple organ dysfunction syndrome [Fatal]
  - Dehydration [Fatal]
  - Acute kidney injury [Fatal]

NARRATIVE: CASE EVENT DATE: 20240601
